FAERS Safety Report 9972131 (Version 1)
Quarter: 2014Q1

REPORT INFORMATION
  Report Type: Report from Study
  Country: US (occurrence: US)
  Receive Date: 20140306
  Receipt Date: 20140306
  Transmission Date: 20141002
  Serious: No
  Sender: FDA-Public Use
  Company Number: US-ABBVIE-13P-163-1148494-00

PATIENT
  Age: 68 Year
  Sex: Female

DRUGS (5)
  1. HUMIRA [Suspect]
     Indication: RHEUMATOID ARTHRITIS
     Dates: start: 20130802
  2. PREDNISONE [Concomitant]
     Indication: PRODUCT USED FOR UNKNOWN INDICATION
     Dosage: 20 MG X 3 DAYS
     Route: 048
     Dates: start: 20130920
  3. PREDNISONE [Concomitant]
     Dosage: 15 MG X 3 DAYS
     Route: 048
  4. PREDNISONE [Concomitant]
     Dosage: 10 MG X 3 DAYS
     Route: 048
  5. PREDNISONE [Concomitant]
     Dosage: 5 MG X 3 DAYS
     Route: 048

REACTIONS (1)
  - Rash pruritic [Not Recovered/Not Resolved]
